FAERS Safety Report 5916971-8 (Version None)
Quarter: 2008Q4

REPORT INFORMATION
  Report Type: 
  Country: None (occurrence: None)
  Receive Date: 20081013
  Receipt Date: 20081007
  Transmission Date: 20090506
  Serious: Yes (Death)
  Sender: FDA-Public Use
  Company Number: US-GENENTECH-254195

PATIENT
  Age: 59 Year
  Sex: Male

DRUGS (7)
  1. RITUXAN [Suspect]
     Indication: NON-HODGKIN'S LYMPHOMA
     Dosage: 375 MG/M2, 1/WEEK
     Dates: start: 20031024, end: 20041210
  2. RITUXAN [Suspect]
     Dosage: 375 MG, 1/WEEK
     Dates: start: 20040901, end: 20041001
  3. RITUXAN [Suspect]
     Dosage: 375 MG, 1/WEEK
     Dates: start: 20061001
  4. CYTOXAN [Concomitant]
     Indication: NON-HODGKIN'S LYMPHOMA
     Dosage: UNK, UNK
     Dates: start: 20061001
  5. FLUDARABINE PHOSPHATE [Concomitant]
     Indication: NON-HODGKIN'S LYMPHOMA
     Dosage: UNK
     Dates: start: 20061001
  6. ADALAT [Concomitant]
     Indication: HYPERTENSION
  7. KEFLEX [Concomitant]
     Indication: CELLULITIS

REACTIONS (1)
  - PROGRESSIVE MULTIFOCAL LEUKOENCEPHALOPATHY [None]
